FAERS Safety Report 4286904-1 (Version None)
Quarter: 2004Q1

REPORT INFORMATION
  Report Type: 
  Country: None (occurrence: None)
  Receive Date: 20040128
  Receipt Date: 20040120
  Transmission Date: 20041129
  Serious: Yes (Death)
  Sender: FDA-Public Use
  Company Number: KII-2003-0006918

PATIENT
  Age: 56 Year
  Sex: Female

DRUGS (4)
  1. MS CONTIN [Suspect]
     Indication: CANCER PAIN
     Dosage: 30 MG, Q12H
  2. MORPHINE SULFATE [Suspect]
     Indication: CANCER PAIN
     Dosage: 30 MG, Q2-4H
  3. COMPAZINE [Suspect]
     Indication: DRUG USE FOR UNKNOWN INDICATION
  4. ATIVAN [Suspect]
     Indication: DRUG USE FOR UNKNOWN INDICATION

REACTIONS (3)
  - BREAST CANCER METASTATIC [None]
  - METASTASES TO SPINE [None]
  - NERVOUS SYSTEM DISORDER [None]
